FAERS Safety Report 18086686 (Version 1)
Quarter: 2020Q3

REPORT INFORMATION
  Report Type: Spontaneous
  Country: US (occurrence: US)
  Receive Date: 20200728
  Receipt Date: 20200728
  Transmission Date: 20201103
  Serious: No
  Sender: FDA-Public Use
  Company Number: None

PATIENT
  Age: 54 Year
  Sex: Female
  Weight: 62.1 kg

DRUGS (6)
  1. CALCIUM [Concomitant]
     Active Substance: CALCIUM
  2. IRON [Concomitant]
     Active Substance: IRON
  3. VITAMIN B12 [Concomitant]
     Active Substance: CYANOCOBALAMIN
  4. MULTIVITAMINS [Concomitant]
     Active Substance: VITAMINS
  5. ADDERALL [Concomitant]
     Active Substance: AMPHETAMINE ASPARTATE\AMPHETAMINE SULFATE\DEXTROAMPHETAMINE SACCHARATE\DEXTROAMPHETAMINE SULFATE
  6. HAND GEL SANITIZER [Suspect]
     Active Substance: ALCOHOL
     Indication: INFECTION PROPHYLAXIS
     Route: 061

REACTIONS (1)
  - Application site exfoliation [None]

NARRATIVE: CASE EVENT DATE: 20200421
